FAERS Safety Report 10183625 (Version 5)
Quarter: 2014Q4

REPORT INFORMATION
  Report Type: Spontaneous
  Country: CA (occurrence: CA)
  Receive Date: 20140520
  Receipt Date: 20141031
  Transmission Date: 20150528
  Serious: Yes (Hospitalization, Other)
  Sender: FDA-Public Use
  Company Number: CA-GLAXOSMITHKLINE-A1069504A

PATIENT
  Age: 61 Year
  Sex: Female
  Weight: 94 kg

DRUGS (4)
  1. SOLU-MEDROL [Concomitant]
     Active Substance: METHYLPREDNISOLONE SODIUM SUCCINATE
     Route: 065
  2. BENLYSTA [Suspect]
     Active Substance: BELIMUMAB
     Indication: SYSTEMIC LUPUS ERYTHEMATOSUS
     Dosage: 0,2,4 WEEKS, THEN EVERY 4 WEEKS
     Route: 042
     Dates: start: 20140124, end: 201407
  3. PREDNISONE. [Concomitant]
     Active Substance: PREDNISONE
     Route: 065
  4. BENLYSTA [Suspect]
     Active Substance: BELIMUMAB
     Dosage: UNK
     Route: 042
     Dates: start: 20140124, end: 201407

REACTIONS (18)
  - Burning sensation [Unknown]
  - Limb operation [Not Recovered/Not Resolved]
  - Wound [Unknown]
  - Musculoskeletal disorder [Unknown]
  - Fall [Unknown]
  - Corrective lens user [Unknown]
  - Post procedural discharge [Not Recovered/Not Resolved]
  - Wound infection [Unknown]
  - Laceration [Unknown]
  - Joint dislocation [Unknown]
  - Skin necrosis [Unknown]
  - Cellulitis [Unknown]
  - Eye disorder [Unknown]
  - Purulent discharge [Unknown]
  - Impaired healing [Recovering/Resolving]
  - Gait disturbance [Unknown]
  - Walking aid user [Unknown]
  - Skin abrasion [Unknown]

NARRATIVE: CASE EVENT DATE: 2014
